FAERS Safety Report 9283923 (Version 1)
Quarter: 2013Q2

REPORT INFORMATION
  Report Type: Spontaneous
  Country: FR (occurrence: FR)
  Receive Date: 20130510
  Receipt Date: 20130510
  Transmission Date: 20140414
  Serious: Yes (Death, Life-Threatening, Other)
  Sender: FDA-Public Use
  Company Number: FR-ASTRAZENECA-2013SE32102

PATIENT
  Age: 59 Year
  Sex: Male

DRUGS (3)
  1. CRESTOR [Suspect]
     Route: 048
     Dates: start: 20121217
  2. TEMERIT [Concomitant]
  3. RAMIPRIL [Concomitant]

REACTIONS (7)
  - Death [Fatal]
  - Loss of consciousness [Unknown]
  - Acute hepatic failure [Unknown]
  - Asthenia [Unknown]
  - Jaundice [Unknown]
  - Agitation [Unknown]
  - Intentional drug misuse [Unknown]
